FAERS Safety Report 20070636 (Version 1)
Quarter: 2021Q4

REPORT INFORMATION
  Report Type: Spontaneous
  Country: US (occurrence: None)
  Receive Date: 20211114
  Receipt Date: 20211114
  Transmission Date: 20220303
  Serious: Yes (Other)
  Sender: FDA-Public Use
  Company Number: None

PATIENT
  Age: 77 Year
  Sex: Female
  Weight: 68.04 kg

DRUGS (2)
  1. IPRATROPIUM BROMIDE [Suspect]
     Active Substance: IPRATROPIUM BROMIDE
  2. ALBUTEROL [Suspect]
     Active Substance: ALBUTEROL

REACTIONS (7)
  - Oral pain [None]
  - Medical device pain [None]
  - Rash [None]
  - Pruritus [None]
  - Dry skin [None]
  - Skin exfoliation [None]
  - Drug hypersensitivity [None]

NARRATIVE: CASE EVENT DATE: 20211109
